FAERS Safety Report 12499244 (Version 1)
Quarter: 2016Q2

REPORT INFORMATION
  Report Type: Spontaneous
  Country: GB (occurrence: GB)
  Receive Date: 20160627
  Receipt Date: 20160627
  Transmission Date: 20160815
  Serious: Yes (Hospitalization)
  Sender: FDA-Public Use
  Company Number: GB-DEXPHARM-20161370

PATIENT
  Sex: Female

DRUGS (8)
  1. LANSOPRAZOLE. [Suspect]
     Active Substance: LANSOPRAZOLE
     Dosage: DAILY DOSE: 30 MG MILLGRAM(S) EVERY DAYS
     Route: 048
  2. IBUPROFEN. [Concomitant]
     Active Substance: IBUPROFEN
  3. SYMBICORT [Concomitant]
     Active Substance: BUDESONIDE\FORMOTEROL FUMARATE DIHYDRATE
  4. HYDROXOCOBALAMIN [Concomitant]
     Active Substance: HYDROXOCOBALAMIN
  5. CARBOCISTEINE [Concomitant]
     Active Substance: CARBOCYSTEINE
  6. PARACETAMOL [Concomitant]
     Active Substance: ACETAMINOPHEN
  7. SALBUTAMOL [Concomitant]
     Active Substance: ALBUTEROL
  8. LOSARTAN. [Suspect]
     Active Substance: LOSARTAN
     Route: 048

REACTIONS (1)
  - Hyponatraemia [Recovering/Resolving]
